FAERS Safety Report 13166671 (Version 1)
Quarter: 2017Q1

REPORT INFORMATION
  Report Type: Spontaneous
  Country: US (occurrence: US)
  Receive Date: 20170126
  Receipt Date: 20170126
  Transmission Date: 20170428
  Serious: Yes (Death)
  Sender: FDA-Public Use
  Company Number: None

PATIENT
  Age: 23 Year
  Sex: Female
  Weight: 81.4 kg

DRUGS (15)
  1. IPILIMUMAB [Suspect]
     Active Substance: IPILIMUMAB
     Indication: T-CELL LYMPHOMA RECURRENT
     Dosage: ?          OTHER FREQUENCY:ONCE;?
     Route: 041
     Dates: start: 20161215, end: 20161215
  2. FOLIC ACID. [Concomitant]
     Active Substance: FOLIC ACID
  3. OXYCODONE [Concomitant]
     Active Substance: OXYCODONE
  4. MORPHINE [Concomitant]
     Active Substance: MORPHINE
  5. APIXABAN [Concomitant]
     Active Substance: APIXABAN
  6. ONDANSETRON [Concomitant]
     Active Substance: ONDANSETRON
  7. HYDROMORPHONE [Concomitant]
     Active Substance: HYDROMORPHONE
  8. BACTRIM [Concomitant]
     Active Substance: SULFAMETHOXAZOLE\TRIMETHOPRIM
  9. RANITIDINE. [Concomitant]
     Active Substance: RANITIDINE
  10. MEGESTROL [Concomitant]
     Active Substance: MEGESTROL
  11. PROMETHAZINE [Concomitant]
     Active Substance: PROMETHAZINE\PROMETHAZINE HYDROCHLORIDE
  12. CYANOCOBALAMIN. [Concomitant]
     Active Substance: CYANOCOBALAMIN
  13. FENTANYL. [Concomitant]
     Active Substance: FENTANYL
  14. ALBUTEROL. [Concomitant]
     Active Substance: ALBUTEROL
  15. DOCUSATE [Concomitant]
     Active Substance: DOCUSATE

REACTIONS (9)
  - Respiratory failure [None]
  - Cardiogenic shock [None]
  - Atrial fibrillation [None]
  - Cardiac arrest [None]
  - Pericarditis constrictive [None]
  - Multiple organ dysfunction syndrome [None]
  - Acute kidney injury [None]
  - Cardiac tamponade [None]
  - Pulseless electrical activity [None]

NARRATIVE: CASE EVENT DATE: 20161217
